FAERS Safety Report 13366913 (Version 1)
Quarter: 2017Q1

REPORT INFORMATION
  Report Type: Spontaneous
  Country: US (occurrence: US)
  Receive Date: 20170324
  Receipt Date: 20170324
  Transmission Date: 20170429
  Serious: No
  Sender: FDA-Public Use
  Company Number: US-BAYER-2017-056193

PATIENT
  Sex: Female

DRUGS (1)
  1. GADAVIST [Suspect]
     Active Substance: GADOBUTROL
     Indication: BACK PAIN
     Dosage: 1 MMOL/ML, 10 CC
     Dates: start: 20170310, end: 20170310

REACTIONS (2)
  - Injection site swelling [Recovering/Resolving]
  - Product use issue [None]
